FAERS Safety Report 6736311-4 (Version None)
Quarter: 2010Q2

REPORT INFORMATION
  Report Type: 
  Country: None (occurrence: None)
  Receive Date: 20100520
  Receipt Date: 20100520
  Transmission Date: 20101027
  Serious: Yes (Hospitalization, Other)
  Sender: FDA-Public Use
  Company Number: None

PATIENT

DRUGS (1)
  1. PROGRAF [Suspect]

REACTIONS (4)
  - HAEMODIALYSIS [None]
  - IMMUNOSUPPRESSANT DRUG LEVEL DECREASED [None]
  - PRODUCT QUALITY ISSUE [None]
  - RENAL FAILURE [None]
